FAERS Safety Report 10168761 (Version 1)
Quarter: 2014Q2

REPORT INFORMATION
  Report Type: Spontaneous
  Country: GB (occurrence: None)
  Receive Date: 20140509
  Receipt Date: 20140509
  Transmission Date: 20141212
  Serious: Yes (Hospitalization)
  Sender: FDA-Public Use
  Company Number: 1370616

PATIENT
  Age: 73 Year
  Sex: Female

DRUGS (1)
  1. LANSOPRAZOLE [Suspect]
     Dosage: 30MG ONCE DAILY

REACTIONS (10)
  - Hypomagnesaemia [None]
  - Lethargy [None]
  - Palpitations [None]
  - Balance disorder [None]
  - Asthenia [None]
  - Nausea [None]
  - Vomiting [None]
  - Supraventricular tachycardia [None]
  - Normochromic normocytic anaemia [None]
  - Hypocalcaemia [None]
